FAERS Safety Report 9379767 (Version 1)
Quarter: 2013Q2

REPORT INFORMATION
  Report Type: Spontaneous
  Country: GB (occurrence: None)
  Receive Date: 20130627
  Receipt Date: 20130627
  Transmission Date: 20140414
  Serious: Yes (Hospitalization, Disabling, Other)
  Sender: FDA-Public Use
  Company Number: 2013P1008860

PATIENT
  Age: 87 Year
  Sex: Male

DRUGS (5)
  1. PHENYTOIN [Suspect]
     Indication: EPILEPSY
  2. RIFAMPICIN [Concomitant]
  3. ISONIAZID [Concomitant]
  4. ETHAMBUTOL [Concomitant]
  5. PYRAZINAMIDE [Concomitant]

REACTIONS (28)
  - Malaise [None]
  - Confusional state [None]
  - Mobility decreased [None]
  - Asthenia [None]
  - Balance disorder [None]
  - Fall [None]
  - General physical health deterioration [None]
  - Cognitive disorder [None]
  - Diplopia [None]
  - Nystagmus [None]
  - C-reactive protein increased [None]
  - Blood bilirubin increased [None]
  - Cerebral small vessel ischaemic disease [None]
  - Escherichia urinary tract infection [None]
  - Dizziness [None]
  - Nausea [None]
  - Vomiting [None]
  - Dysarthria [None]
  - Dysphagia [None]
  - Choking [None]
  - Hypophagia [None]
  - Blood albumin decreased [None]
  - Jaundice [None]
  - Intention tremor [None]
  - Decreased appetite [None]
  - Toxicity to various agents [None]
  - Stress [None]
  - Gilbert^s syndrome [None]
